FAERS Safety Report 8000385-3 (Version None)
Quarter: 2011Q4

REPORT INFORMATION
  Report Type: 
  Country: None (occurrence: None)
  Receive Date: 20111222
  Receipt Date: 20111128
  Transmission Date: 20120403
  Serious: No
  Sender: FDA-Public Use
  Company Number: US-BAYER-2011-114467

PATIENT
  Age: 60 Year
  Sex: Male

DRUGS (3)
  1. AVELOX [Suspect]
     Indication: UNEVALUABLE EVENT
     Dosage: 400 MG, QD
     Route: 048
     Dates: start: 20111024
  2. ADVAIR DISKUS 100/50 [Concomitant]
  3. PROVENTIL [Concomitant]

REACTIONS (1)
  - PAIN IN EXTREMITY [None]
